FAERS Safety Report 9419685 (Version 1)
Quarter: 2013Q3

REPORT INFORMATION
  Report Type: Report from Study
  Country: HT (occurrence: HT)
  Receive Date: 20130725
  Receipt Date: 20130725
  Transmission Date: 20140515
  Serious: Yes (Death, Other)
  Sender: FDA-Public Use
  Company Number: PHHY2013HT034429

PATIENT
  Sex: Female

DRUGS (3)
  1. GLIVEC [Suspect]
     Indication: GASTROINTESTINAL STROMAL TUMOUR
     Dosage: 400 MG, UNK
     Dates: start: 20110531
  2. GLIVEC [Suspect]
     Dosage: 600 MG, UNK
     Dates: end: 201306
  3. TRAMADOL + ACETAMINOFEN [Concomitant]
     Indication: PAIN
     Dosage: 750 MG, TID

REACTIONS (4)
  - Gastrointestinal stromal tumour [Fatal]
  - Malignant neoplasm progression [Fatal]
  - Neoplasm recurrence [Unknown]
  - Treatment failure [Unknown]
